FAERS Safety Report 13608488 (Version 1)
Quarter: 2017Q2

REPORT INFORMATION
  Report Type: Spontaneous
  Country: IT (occurrence: IT)
  Receive Date: 20170602
  Receipt Date: 20170602
  Transmission Date: 20170830
  Serious: Yes (Hospitalization)
  Sender: FDA-Public Use
  Company Number: IT-BAYER-2017-103236

PATIENT
  Age: 62 Year
  Sex: Female

DRUGS (10)
  1. TRIATEC [Suspect]
     Active Substance: RAMIPRIL
     Dosage: DAILY DOSE 10 MG
     Route: 048
     Dates: start: 20170424, end: 20170425
  2. AGGRASTAT [Concomitant]
     Active Substance: TIROFIBAN HYDROCHLORIDE
     Route: 042
  3. PANTORC [Concomitant]
     Active Substance: PANTOPRAZOLE SODIUM
     Dosage: DAILY DOSE 40 MG
     Route: 048
     Dates: start: 20170424, end: 20170426
  4. TORVAST [Concomitant]
     Active Substance: ATORVASTATIN
     Dosage: DAILY DOSE 80 MG
     Route: 048
  5. CARDIOASPIRIN 100 MG [Suspect]
     Active Substance: ASPIRIN
     Dosage: 100 MG, DAILY DOSE
     Route: 048
  6. ULTRAVIST [Suspect]
     Active Substance: IOPROMIDE
     Dosage: 200 ML, ONCE
     Route: 042
     Dates: start: 20170424, end: 20170424
  7. BRILIQUE [Concomitant]
     Active Substance: TICAGRELOR
     Dosage: DAILY DOSE 180 MG
     Route: 048
  8. CLEXANE [Concomitant]
     Active Substance: ENOXAPARIN SODIUM
     Dosage: DAILY DOSE 6000 IU
     Route: 058
  9. CONGESCOR [Concomitant]
     Active Substance: BISOPROLOL
     Dosage: DAILY DOSE 2.5 MG
     Route: 048
  10. HUMALOG [Concomitant]
     Active Substance: INSULIN LISPRO
     Route: 058

REACTIONS (1)
  - Acute kidney injury [Recovered/Resolved]

NARRATIVE: CASE EVENT DATE: 20170425
